FAERS Safety Report 10529877 (Version 1)
Quarter: 2014Q4

REPORT INFORMATION
  Report Type: Spontaneous
  Country: US (occurrence: None)
  Receive Date: 20141020
  Receipt Date: 20141020
  Transmission Date: 20150528
  Serious: Yes (Disabling)
  Sender: FDA-Public Use
  Company Number: None

PATIENT
  Age: 46 Year
  Sex: Male
  Weight: 102.06 kg

DRUGS (1)
  1. NUVIGIL [Suspect]
     Active Substance: ARMODAFINIL
     Indication: SOMNOLENCE
     Dosage: TAKEN BY MOUTH
     Route: 048
     Dates: start: 20140815, end: 20140817

REACTIONS (6)
  - Heart rate increased [None]
  - Anxiety [None]
  - Weight decreased [None]
  - Palpitations [None]
  - Vomiting [None]
  - Tinnitus [None]

NARRATIVE: CASE EVENT DATE: 20140815
